FAERS Safety Report 9977428 (Version 1)
Quarter: 2014Q1

REPORT INFORMATION
  Report Type: Report from Study
  Country: US (occurrence: US)
  Receive Date: 20140306
  Receipt Date: 20140306
  Transmission Date: 20141002
  Serious: No
  Sender: FDA-Public Use
  Company Number: US-ABBVIE-13P-163-1162475-00

PATIENT
  Age: 69 Year
  Sex: Male

DRUGS (5)
  1. HUMIRA [Suspect]
     Indication: COLITIS ULCERATIVE
  2. ASACOL [Concomitant]
     Indication: COLITIS ULCERATIVE
     Dosage: 400 MG, 6 TABS TWICE A DAY
  3. URSODIOL [Concomitant]
     Indication: LIVER DISORDER
  4. LANSOPRAZOLE DR 30 [Concomitant]
     Indication: GASTROOESOPHAGEAL REFLUX DISEASE
  5. ADVAIR [Concomitant]
     Indication: ASTHMA
     Dosage: DISK: 250/50 MG, 1 PUFF TWICE A DAY

REACTIONS (3)
  - Device malfunction [Unknown]
  - Injection site haemorrhage [Recovering/Resolving]
  - Drug dose omission [Unknown]
